FAERS Safety Report 8853443 (Version 1)
Quarter: 2012Q4

REPORT INFORMATION
  Report Type: 
  Country: IT (occurrence: IT)
  Receive Date: 20121022
  Receipt Date: 20121022
  Transmission Date: 20130627
  Serious: Yes (Hospitalization)
  Sender: FDA-Public Use
  Company Number: IT-GLAXOSMITHKLINE-B0838556A

PATIENT
  Age: 57 Year
  Sex: Female

DRUGS (8)
  1. ARIXTRA [Suspect]
     Indication: THROMBOSIS PROPHYLAXIS
     Dosage: 2.5MG per day
     Route: 058
     Dates: start: 20120914, end: 20120916
  2. UNSPECIFIED INGREDIENT [Suspect]
     Indication: THROMBOSIS PROPHYLAXIS
     Route: 058
     Dates: start: 20120913, end: 20120913
  3. LEVOTIROXINA (LEVOTHYROXINE SODIUM) [Concomitant]
     Dosage: 50MG per day
     Route: 048
  4. CLONAZEPAM [Concomitant]
     Dosage: 30DROP per day
     Route: 048
  5. SIMVASTATINA [Concomitant]
     Dosage: 40MG per day
     Route: 048
  6. OMEPRAZOLE [Concomitant]
     Dosage: 20MG per day
     Route: 048
  7. PROPANOLOL [Concomitant]
     Dosage: 80MG per day
     Route: 048
  8. GABAPENTIN [Concomitant]
     Dosage: 800MG per day
     Route: 048

REACTIONS (1)
  - Lichenoid keratosis [Recovered/Resolved]
